FAERS Safety Report 8555960-4 (Version None)
Quarter: 2012Q3

REPORT INFORMATION
  Report Type: 
  Country: None (occurrence: None)
  Receive Date: 20120801
  Receipt Date: 20120723
  Transmission Date: 20120928
  Serious: Yes (Other)
  Sender: FDA-Public Use
  Company Number: US-MSD-1207USA010549

PATIENT

DRUGS (1)
  1. ZOCOR [Suspect]
     Dosage: UNK
     Route: 048

REACTIONS (4)
  - FATIGUE [None]
  - MUSCLE DISORDER [None]
  - PERFORMANCE STATUS DECREASED [None]
  - DYSPNOEA [None]
